FAERS Safety Report 14997945 (Version 1)
Quarter: 2018Q2

REPORT INFORMATION
  Report Type: Spontaneous
  Country: US (occurrence: US)
  Receive Date: 20180611
  Receipt Date: 20180611
  Transmission Date: 20180711
  Serious: No
  Sender: FDA-Public Use
  Company Number: US-FOUNDATIONCONSUMERHC-2018-US-007804

PATIENT
  Age: 26 Year
  Sex: Female
  Weight: 54.43 kg

DRUGS (3)
  1. HAIR, SKIN AND NAILS [Concomitant]
  2. UNSPECIFIED CAFFEINE PILLS [Concomitant]
  3. AFTERA [Suspect]
     Active Substance: LEVONORGESTREL
     Indication: POST COITAL CONTRACEPTION
     Dosage: 1.5 MG X 1
     Route: 048
     Dates: start: 20180509, end: 20180509

REACTIONS (2)
  - Nausea [Not Recovered/Not Resolved]
  - Vomiting [Not Recovered/Not Resolved]

NARRATIVE: CASE EVENT DATE: 20180509
